FAERS Safety Report 8936841 (Version 1)
Quarter: 2012Q4

REPORT INFORMATION
  Report Type: 
  Country: US (occurrence: US)
  Receive Date: 20121130
  Receipt Date: 20121130
  Transmission Date: 20130627
  Serious: No
  Sender: FDA-Public Use
  Company Number: US-BAYER-2012-124814

PATIENT
  Age: 50 Year
  Sex: Male

DRUGS (2)
  1. AVELOX I.V. [Suspect]
     Indication: PNEUMONIA
     Dosage: 400 mg, QD
     Dates: start: 20121116, end: 20121123
  2. AVELOX [Suspect]
     Route: 048

REACTIONS (1)
  - Musculoskeletal pain [Not Recovered/Not Resolved]
